FAERS Safety Report 19948304 (Version 2)
Quarter: 2021Q4

REPORT INFORMATION
  Report Type: Spontaneous
  Country: JP (occurrence: JP)
  Receive Date: 20211012
  Receipt Date: 20211108
  Transmission Date: 20220304
  Serious: Yes (Other)
  Sender: FDA-Public Use
  Company Number: JP-PFIZER INC-202101295514

PATIENT
  Age: 71 Year
  Sex: Male

DRUGS (4)
  1. BESPONSA [Suspect]
     Active Substance: INOTUZUMAB OZOGAMICIN
     Indication: Acute lymphocytic leukaemia
     Dosage: 0.8 MG/M2, CYCLIC FOR THE FIRST DOSE OF CYCLE 1
     Route: 041
     Dates: start: 202103
  2. BESPONSA [Suspect]
     Active Substance: INOTUZUMAB OZOGAMICIN
     Dosage: 0.5 MG/M2, CYCLIC, 2ND DOSE OF CYCLE 1
     Route: 041
     Dates: start: 2021
  3. BESPONSA [Suspect]
     Active Substance: INOTUZUMAB OZOGAMICIN
     Dosage: 0.5 MG/M2, CYCLIC, UNTIL THE 3RD DOSE OF CYCLE 4
     Route: 041
     Dates: start: 202108
  4. BESPONSA [Suspect]
     Active Substance: INOTUZUMAB OZOGAMICIN
     Dosage: UNK

REACTIONS (3)
  - Diabetes mellitus [Unknown]
  - Liver disorder [Recovering/Resolving]
  - Platelet count decreased [Unknown]

NARRATIVE: CASE EVENT DATE: 20210101
